FAERS Safety Report 6439023-X (Version None)
Quarter: 2009Q4

REPORT INFORMATION
  Report Type: 
  Country: None (occurrence: None)
  Receive Date: 20091111
  Receipt Date: 20091111
  Transmission Date: 20100525
  Serious: Yes (Other)
  Sender: FDA-Public Use
  Company Number: None

PATIENT
  Sex: Female
  Weight: 108.8633 kg

DRUGS (1)
  1. MIRENA [Suspect]
     Indication: CONTRACEPTION
     Dates: start: 20080506, end: 20081124

REACTIONS (5)
  - DRUG EXPOSURE BEFORE PREGNANCY [None]
  - GAIT DISTURBANCE [None]
  - GENITAL PAIN [None]
  - HAEMORRHAGE [None]
  - URINARY TRACT INFECTION [None]
